FAERS Safety Report 14921616 (Version 2)
Quarter: 2018Q4

REPORT INFORMATION
  Report Type: Report from Study
  Country: RO (occurrence: RO)
  Receive Date: 20180522
  Receipt Date: 20181108
  Transmission Date: 20190204
  Serious: Yes (Other)
  Sender: FDA-Public Use
  Company Number: RO-KADMON PHARMACEUTICALS, LLC-KAD201805-000287

PATIENT
  Age: 64 Year
  Sex: Male

DRUGS (8)
  1. OMBITASVIR/PARITAPREVIR/RITONAVIR [Suspect]
     Active Substance: OMBITASVIR\PARITAPREVIR\RITONAVIR
     Indication: HEPATITIS C
     Dosage: 25MG/150MG/100MG
  2. PROPRANOLOL [Suspect]
     Active Substance: PROPRANOLOL HYDROCHLORIDE
     Indication: HAEMORRHAGE PROPHYLAXIS
     Dosage: 120 MG
  3. DASABUVIR [Suspect]
     Active Substance: DASABUVIR
     Indication: HEPATITIS C
     Dosage: 250 MG
  4. DASABUVIR [Suspect]
     Active Substance: DASABUVIR
     Indication: HEPATIC CIRRHOSIS
     Dosage: UNKNOWN
  5. RIBAVIRIN. [Suspect]
     Active Substance: RIBAVIRIN
     Indication: HEPATIC CIRRHOSIS
     Dosage: UNKNOWN
  6. RIBAVIRIN. [Suspect]
     Active Substance: RIBAVIRIN
     Indication: HEPATITIS C
     Dosage: UNKNOWN
  7. OMBITASVIR/PARITAPREVIR/RITONAVIR [Suspect]
     Active Substance: OMBITASVIR\PARITAPREVIR\RITONAVIR
     Indication: HEPATIC CIRRHOSIS
     Dosage: UNKNOWN
  8. PROPRANOLOL [Suspect]
     Active Substance: PROPRANOLOL HYDROCHLORIDE
     Dosage: DOSE DECREASED

REACTIONS (3)
  - Bradycardia [Recovered/Resolved]
  - Syncope [Recovered/Resolved]
  - Drug interaction [Recovered/Resolved]
